FAERS Safety Report 21556562 (Version 1)
Quarter: 2022Q4

REPORT INFORMATION
  Report Type: Report from Study
  Country: DE (occurrence: DE)
  Receive Date: 20221104
  Receipt Date: 20221104
  Transmission Date: 20230112
  Serious: Yes (Hospitalization, Other)
  Sender: FDA-Public Use
  Company Number: DE-AMGEN-DEUNI2022186501

PATIENT
  Age: 26 Year
  Sex: Male
  Weight: 172 kg

DRUGS (1)
  1. ADALIMUMAB [Suspect]
     Active Substance: ADALIMUMAB
     Indication: Psoriasis
     Dosage: 40 MILLIGRAM
     Route: 058
     Dates: start: 20220728

REACTIONS (1)
  - Metabolic surgery [Recovered/Resolved]

NARRATIVE: CASE EVENT DATE: 20220913
